FAERS Safety Report 21025822 (Version 1)
Quarter: 2022Q2

REPORT INFORMATION
  Report Type: Spontaneous
  Country: US (occurrence: US)
  Receive Date: 20220630
  Receipt Date: 20220630
  Transmission Date: 20220720
  Serious: No
  Sender: FDA-Public Use
  Company Number: US-SA-SAC20220623000297

PATIENT
  Age: 42 Year
  Sex: Female

DRUGS (2)
  1. DUPIXENT [Suspect]
     Active Substance: DUPILUMAB
     Indication: Dermatitis atopic
  2. TRALOKINUMAB [Concomitant]
     Active Substance: TRALOKINUMAB
     Indication: Erythema

REACTIONS (5)
  - Condition aggravated [Unknown]
  - Blister [Unknown]
  - Erythema [Unknown]
  - Rash [Unknown]
  - Rash pustular [Unknown]
